FAERS Safety Report 18571554 (Version 5)
Quarter: 2021Q1

REPORT INFORMATION
  Report Type: Spontaneous
  Country: JP (occurrence: JP)
  Receive Date: 20201202
  Receipt Date: 20210218
  Transmission Date: 20210419
  Serious: Yes (Hospitalization)
  Sender: FDA-Public Use
  Company Number: JP-PFIZER INC-2020474070

PATIENT
  Age: 66 Year
  Sex: Female
  Weight: 54.1 kg

DRUGS (11)
  1. TOFRANIL [Concomitant]
     Active Substance: IMIPRAMINE HYDROCHLORIDE
     Dosage: 25 MG, 1X/DAY
     Dates: start: 20201020
  2. CALONAL [Suspect]
     Active Substance: ACETAMINOPHEN
     Indication: HERPES ZOSTER
     Dosage: 600 MG, 3X/DAY
     Route: 048
     Dates: start: 20201003, end: 20201011
  3. CALONAL [Suspect]
     Active Substance: ACETAMINOPHEN
     Dosage: 400 MG, 3X/DAY
     Route: 048
     Dates: start: 20201012, end: 20201026
  4. LYRICA [Suspect]
     Active Substance: PREGABALIN
     Indication: HERPES ZOSTER
     Dosage: UNK
     Route: 048
     Dates: start: 202007, end: 2020
  5. LYRICA [Suspect]
     Active Substance: PREGABALIN
     Dosage: 25 MG, 3X/DAY
     Route: 048
     Dates: start: 20201006, end: 20201019
  6. CALONAL [Suspect]
     Active Substance: ACETAMINOPHEN
     Dosage: 400 MG, AS NEEDED
     Route: 048
     Dates: start: 20201027, end: 20201121
  7. LOXONIN [Concomitant]
     Active Substance: LOXOPROFEN SODIUM
     Indication: HERPES ZOSTER
     Dosage: 60 MG, AS NEEDED
     Route: 048
     Dates: start: 20201003, end: 20201113
  8. AMENALIEF [Concomitant]
     Active Substance: AMENAMEVIR
     Indication: HERPES ZOSTER
     Dosage: 200 MG, 1X/DAY
     Route: 048
     Dates: start: 20201003, end: 20201007
  9. SOLON [SOFALCONE] [Concomitant]
     Indication: HERPES ZOSTER
     Dosage: 50 MG, 3X/DAY
     Route: 048
     Dates: start: 20201003, end: 20201102
  10. EPINASTINE HYDROCHLORIDE. [Concomitant]
     Active Substance: EPINASTINE HYDROCHLORIDE
     Indication: HERPES ZOSTER
     Dosage: 20 MG, 1X/DAY
     Route: 048
     Dates: start: 20201012, end: 20201019
  11. LYRICA [Suspect]
     Active Substance: PREGABALIN
     Dosage: 75 MG, 2X/DAY
     Route: 048
     Dates: start: 20201119, end: 20201121

REACTIONS (5)
  - Palpitations [Unknown]
  - Chest discomfort [Unknown]
  - Dizziness [Unknown]
  - Drug-induced liver injury [Recovered/Resolved]
  - Feeling abnormal [Recovered/Resolved]

NARRATIVE: CASE EVENT DATE: 20201007
